FAERS Safety Report 9382192 (Version 1)
Quarter: 2013Q3

REPORT INFORMATION
  Report Type: Spontaneous
  Country: FR (occurrence: FR)
  Receive Date: 20130703
  Receipt Date: 20130703
  Transmission Date: 20140515
  Serious: Yes (Hospitalization, Other)
  Sender: FDA-Public Use
  Company Number: FR-009507513-1306FRA011198

PATIENT
  Sex: Female

DRUGS (2)
  1. FOSAVANCE [Suspect]
     Indication: OSTEOPOROSIS PROPHYLAXIS
     Dosage: 1 DF, QW
     Route: 048
     Dates: start: 2006, end: 201205
  2. CORTANCYL [Suspect]
     Indication: RHEUMATOID ARTHRITIS
     Dosage: 6 MG, QD
     Route: 048

REACTIONS (1)
  - Osteonecrosis [Not Recovered/Not Resolved]
